FAERS Safety Report 6927640-X (Version None)
Quarter: 2010Q3

REPORT INFORMATION
  Report Type: 
  Country: None (occurrence: None)
  Receive Date: 20100817
  Receipt Date: 20100804
  Transmission Date: 20110219
  Serious: Yes (Hospitalization)
  Sender: FDA-Public Use
  Company Number: PHFR2010GB01703

PATIENT
  Sex: Male

DRUGS (1)
  1. CLOZARIL [Suspect]
     Indication: SCHIZOPHRENIA
     Route: 048
     Dates: start: 19940519, end: 20100515

REACTIONS (3)
  - GASTROINTESTINAL SURGERY [None]
  - POST PROCEDURAL COMPLICATION [None]
  - RENAL FAILURE [None]
